FAERS Safety Report 20750739 (Version 1)
Quarter: 2022Q2

REPORT INFORMATION
  Report Type: Spontaneous
  Country: US (occurrence: US)
  Receive Date: 20220426
  Receipt Date: 20220426
  Transmission Date: 20220721
  Serious: No
  Sender: FDA-Public Use
  Company Number: US-PFIZER INC-202200483187

PATIENT
  Age: 74 Year
  Sex: Female

DRUGS (1)
  1. PRISTIQ EXTENDED-RELEASE [Suspect]
     Active Substance: DESVENLAFAXINE SUCCINATE
     Dosage: 35 MG

REACTIONS (5)
  - Nausea [Recovering/Resolving]
  - Dizziness [Unknown]
  - Hyperhidrosis [Unknown]
  - Diarrhoea [Unknown]
  - Decreased appetite [Unknown]
